FAERS Safety Report 5382524-6 (Version None)
Quarter: 2007Q2

REPORT INFORMATION
  Report Type: 
  Country: None (occurrence: None)
  Receive Date: 20070629
  Receipt Date: 20070130
  Transmission Date: 20071010
  Serious: Yes (Other)
  Sender: FDA-Public Use
  Company Number: US200701006375

PATIENT
  Sex: Male

DRUGS (4)
  1. HUMALOG [Suspect]
     Dosage: SUB. PUMP; SUB. PUMP
     Route: 058
     Dates: start: 19960101, end: 19990101
  2. HUMALOG [Suspect]
     Dosage: SUB. PUMP; SUB. PUMP
     Route: 058
     Dates: start: 20070102, end: 20070116
  3. HUMULIN N [Suspect]
     Indication: DIABETES MELLITUS INSULIN-DEPENDENT
     Dates: start: 19700101, end: 19960101
  4. GLUCAGON [Suspect]
     Indication: CONVULSION

REACTIONS (4)
  - BLOOD GLUCOSE DECREASED [None]
  - BLOOD GLUCOSE INCREASED [None]
  - CONVULSION [None]
  - LIPOHYPERTROPHY [None]
